FAERS Safety Report 4610184-8 (Version None)
Quarter: 2005Q1

REPORT INFORMATION
  Report Type: 
  Country: None (occurrence: None)
  Receive Date: 20050314
  Receipt Date: 20050228
  Transmission Date: 20050727
  Serious: Yes (Death, Hospitalization)
  Sender: FDA-Public Use
  Company Number: HQWYE724812OCT04

PATIENT
  Age: 80 Year
  Sex: Male

DRUGS (7)
  1. AMIODARONE HCL [Suspect]
     Indication: VENTRICULAR TACHYCARDIA
     Dosage: 50 MG 2X PER  1 DAY
     Route: 048
     Dates: start: 20030419, end: 20040928
  2. LASIX [Concomitant]
  3. WARFARIN SODIUM [Concomitant]
  4. BAYASPIRINA (ACETYLSALICYLIC ACID) [Concomitant]
  5. TORSEMIDE [Concomitant]
  6. DILTIAZEM HYDROCHLORIDE [Concomitant]
  7. LIPITOR [Concomitant]

REACTIONS (4)
  - HAEMOGLOBIN DECREASED [None]
  - INTERSTITIAL LUNG DISEASE [None]
  - PNEUMONIA BACTERIAL [None]
  - SEPSIS [None]
